FAERS Safety Report 25773534 (Version 2)
Quarter: 2025Q4

REPORT INFORMATION
  Report Type: Spontaneous
  Country: US (occurrence: US)
  Receive Date: 20250908
  Receipt Date: 20251010
  Transmission Date: 20260118
  Serious: No
  Sender: PFIZER
  Company Number: US-PFIZER INC-PV202500107488

PATIENT
  Age: 86 Year
  Sex: Female

DRUGS (3)
  1. CEFTAZIDIME [Suspect]
     Active Substance: CEFTAZIDIME
     Dosage: UNK
  2. RIFABUTIN [Suspect]
     Active Substance: RIFABUTIN
     Dosage: UNK
  3. AZITHROMYCIN [Suspect]
     Active Substance: AZITHROMYCIN
     Dosage: UNK

REACTIONS (5)
  - Dyspnoea [Unknown]
  - Chills [Unknown]
  - Night sweats [Unknown]
  - Fatigue [Unknown]
  - Pyrexia [Unknown]
